FAERS Safety Report 15571886 (Version 1)
Quarter: 2018Q4

REPORT INFORMATION
  Report Type: Spontaneous
  Country: US (occurrence: US)
  Receive Date: 20181031
  Receipt Date: 20181031
  Transmission Date: 20190205
  Serious: Yes (Disabling, Other)
  Sender: FDA-Public Use
  Company Number: US-PFIZER INC-2018437752

PATIENT
  Age: 83 Year
  Sex: Female
  Weight: 83.91 kg

DRUGS (1)
  1. LYRICA [Suspect]
     Active Substance: PREGABALIN
     Indication: NEUROPATHY PERIPHERAL
     Dosage: 150 MG, 2X/DAY (TAKES 150MG ONCE AT NIGHT BEFORE BED, BUT IF SHE WAKES UP WITH HER PROBLEM SHE)

REACTIONS (2)
  - Intentional product use issue [Unknown]
  - Dementia Alzheimer^s type [Not Recovered/Not Resolved]
